FAERS Safety Report 8219012-5 (Version None)
Quarter: 2012Q1

REPORT INFORMATION
  Report Type: 
  Country: None (occurrence: None)
  Receive Date: 20120319
  Receipt Date: 20120301
  Transmission Date: 20120608
  Serious: No
  Sender: FDA-Public Use
  Company Number: US-ROXANE LABORATORIES, INC.-2012-RO-00754RO

PATIENT
  Sex: Female

DRUGS (2)
  1. FLUTICASONE FUROATE [Suspect]
     Indication: NASAL CONGESTION
     Route: 045
  2. ASTEPRO [Concomitant]

REACTIONS (3)
  - ORAL PAIN [None]
  - STOMATITIS [None]
  - DRY SKIN [None]
